FAERS Safety Report 6098066-9 (Version None)
Quarter: 2009Q1

REPORT INFORMATION
  Report Type: 
  Country: None (occurrence: None)
  Receive Date: 20090227
  Receipt Date: 20090220
  Transmission Date: 20090719
  Serious: Yes (Hospitalization)
  Sender: FDA-Public Use
  Company Number: JP-ASTRAZENECA-2008AP07601

PATIENT
  Age: 72 Year
  Sex: Male
  Weight: 52 kg

DRUGS (6)
  1. NAROPIN [Suspect]
     Indication: EPIDURAL ANAESTHESIA
     Route: 008
     Dates: start: 20080911, end: 20080911
  2. NAROPIN [Suspect]
     Dosage: 2 ML/H FOR 3 DAYS
     Route: 008
     Dates: start: 20080911, end: 20080914
  3. CARBOCAIN [Suspect]
     Indication: EPIDURAL ANAESTHESIA
     Dosage: 1.5 % 10 ML X2
     Route: 008
     Dates: start: 20080911, end: 20080911
  4. MORPHINE HYDROCHLORIDE [Suspect]
     Indication: EPIDURAL ANAESTHESIA
     Route: 008
     Dates: start: 20080911, end: 20080911
  5. MORPHINE HYDROCHLORIDE [Suspect]
     Dosage: ADMINISTERED 6 MG FOR 3 DAYS, CONCOMITANTLY ADMINISTERED WITH ANAPEINE.
     Route: 008
     Dates: start: 20080911, end: 20080914
  6. MIDAZOLAM HCL [Concomitant]
     Indication: SEDATIVE THERAPY
     Route: 042
     Dates: start: 20080911, end: 20080911

REACTIONS (1)
  - CAUDA EQUINA SYNDROME [None]
